FAERS Safety Report 4505448-2 (Version None)
Quarter: 2004Q4

REPORT INFORMATION
  Report Type: 
  Country: None (occurrence: None)
  Receive Date: 20041116
  Receipt Date: 20041102
  Transmission Date: 20050328
  Serious: Yes (Life-Threatening, Hospitalization, Disabling)
  Sender: FDA-Public Use
  Company Number: 2004GB02557

PATIENT
  Age: 72 Year
  Sex: Male
  Weight: 62 kg

DRUGS (12)
  1. GEFITINIB [Suspect]
     Indication: METASTASES TO LIVER
     Dosage: 250 MG QD PO
     Route: 048
     Dates: start: 20040720, end: 20040914
  2. GEFITINIB [Suspect]
     Indication: NON-SMALL CELL LUNG CANCER
     Dosage: 250 MG QD PO
     Route: 048
     Dates: start: 20040720, end: 20040914
  3. DICLOFENAC [Concomitant]
  4. ATENOLOL [Concomitant]
  5. FRUSEMIDE [Concomitant]
  6. LANSOPRAZOLE [Concomitant]
  7. AMOXICILLIN [Concomitant]
  8. FERROUS SULFATE TAB [Concomitant]
  9. ASPIRIN [Concomitant]
  10. GTN SPRAY [Concomitant]
  11. PARACETAMOL [Concomitant]
  12. ORAMORPH SR [Concomitant]

REACTIONS (6)
  - APHAGIA [None]
  - CHILLS [None]
  - DYSPHAGIA [None]
  - HEADACHE [None]
  - NEUTROPENIC SEPSIS [None]
  - PHARYNGOLARYNGEAL PAIN [None]
